FAERS Safety Report 10265113 (Version 2)
Quarter: 2014Q2

REPORT INFORMATION
  Report Type: Spontaneous
  Country: JP (occurrence: JP)
  Receive Date: 20140627
  Receipt Date: 20140627
  Transmission Date: 20141212
  Serious: Yes (Hospitalization, Other)
  Sender: FDA-Public Use
  Company Number: JP-TAKEDA-2014TJP006282

PATIENT
  Age: 77 Year
  Sex: Male

DRUGS (3)
  1. TAKEPRON OD TABLETS 15 [Suspect]
     Indication: GASTROOESOPHAGEAL REFLUX DISEASE
     Dosage: 15 MG, QD
     Route: 048
     Dates: start: 20110827, end: 201405
  2. INFREE S [Concomitant]
     Dosage: UNK
     Route: 048
  3. METGLUCO [Concomitant]
     Dosage: UNK
     Route: 048

REACTIONS (1)
  - Interstitial lung disease [Not Recovered/Not Resolved]
